FAERS Safety Report 6279926-2 (Version None)
Quarter: 2009Q3

REPORT INFORMATION
  Report Type: 
  Country: None (occurrence: None)
  Receive Date: 20090723
  Receipt Date: 20090309
  Transmission Date: 20100115
  Serious: No
  Sender: FDA-Public Use
  Company Number: US-AMGEN-KDL337722

PATIENT
  Sex: Male
  Weight: 90.8 kg

DRUGS (12)
  1. PROCRIT [Suspect]
     Indication: ANAEMIA
     Route: 058
     Dates: start: 20080701
  2. ASPIRIN [Concomitant]
  3. DOXAZOSIN MESYLATE [Concomitant]
  4. LEVOXYL [Concomitant]
  5. FISH OIL [Concomitant]
  6. GLUCOSAMINE W/CHONDROITIN SULFATES [Concomitant]
  7. MULTI-VITAMINS [Concomitant]
  8. DETROL [Concomitant]
  9. FEOSOL [Concomitant]
  10. NIFEDIPINE [Concomitant]
  11. MAGNESIUM [Concomitant]
  12. UNSPECIFIED MEDICATION [Concomitant]

REACTIONS (1)
  - NEUROPATHY PERIPHERAL [None]
